FAERS Safety Report 15774533 (Version 2)
Quarter: 2019Q1

REPORT INFORMATION
  Report Type: Spontaneous
  Country: JP (occurrence: JP)
  Receive Date: 20181229
  Receipt Date: 20190116
  Transmission Date: 20190417
  Serious: No
  Sender: FDA-Public Use
  Company Number: JP-GLAXOSMITHKLINE-JP2018JPN232870

PATIENT
  Age: 79 Year
  Sex: Male

DRUGS (2)
  1. AVOLVE [Suspect]
     Active Substance: DUTASTERIDE
     Indication: BENIGN PROSTATIC HYPERPLASIA
     Dosage: NO TAKING
     Route: 048
     Dates: start: 20181027
  2. FLIVAS [Concomitant]
     Active Substance: NAFTOPIDIL
     Dosage: UNK
     Route: 048
     Dates: start: 20181027

REACTIONS (1)
  - Treatment noncompliance [Unknown]

NARRATIVE: CASE EVENT DATE: 2018
